FAERS Safety Report 14823037 (Version 2)
Quarter: 2018Q2

REPORT INFORMATION
  Report Type: Spontaneous
  Country: GR (occurrence: GR)
  Receive Date: 20180427
  Receipt Date: 20180524
  Transmission Date: 20180711
  Serious: Yes (Other)
  Sender: FDA-Public Use
  Company Number: GR-TEVA-2018-GR-885739

PATIENT
  Age: 82 Year
  Sex: Female

DRUGS (2)
  1. IBANDRONATE [Suspect]
     Active Substance: IBANDRONATE SODIUM
     Dosage: USED ALREADY FOR 3 YEARS
     Route: 065
  2. ALEDRONATE [Suspect]
     Active Substance: ALENDRONATE SODIUM
     Dosage: USED ALREADY FOR 3 YEARS
     Route: 065

REACTIONS (1)
  - Atypical femur fracture [Recovered/Resolved]
